FAERS Safety Report 19484364 (Version 2)
Quarter: 2023Q1

REPORT INFORMATION
  Report Type: Spontaneous
  Country: LT (occurrence: LT)
  Receive Date: 20210701
  Receipt Date: 20230216
  Transmission Date: 20230418
  Serious: Yes (Hospitalization, Other)
  Sender: FDA-Public Use
  Company Number: LT-ORION CORPORATION ORION PHARMA-OLAA2021-0005

PATIENT

DRUGS (39)
  1. IBUPROFEN [Suspect]
     Active Substance: IBUPROFEN
     Indication: Pyrexia
     Dosage: 400 MG, QD (31ST DAY)
     Route: 048
  2. QUETIAPINE [Suspect]
     Active Substance: QUETIAPINE
     Indication: Psychotic disorder
     Dosage: 500 MG, QD (300 MILLIGRAM, QD 43RD DAY)
     Route: 048
  3. QUETIAPINE [Suspect]
     Active Substance: QUETIAPINE
     Dosage: 300 MG, QD (300 MILLIGRAM, QD 42ND DAY)
     Route: 048
  4. DIAZEPAM [Suspect]
     Active Substance: DIAZEPAM
     Indication: Aggression
     Dosage: 15 MG, QD (36TH DAY TO 42ND DAY)
     Route: 048
  5. DIAZEPAM [Suspect]
     Active Substance: DIAZEPAM
     Indication: Persecutory delusion
     Dosage: 15 MG, QD (1ST DAY TO 32ND DAY)
     Route: 048
  6. DIAZEPAM [Suspect]
     Active Substance: DIAZEPAM
     Indication: Psychotic symptom
  7. DIAZEPAM [Suspect]
     Active Substance: DIAZEPAM
     Indication: Psychomotor hyperactivity
  8. LORATADINE [Suspect]
     Active Substance: LORATADINE
     Indication: Dermatitis allergic
     Dosage: 10 MG (31ST DAY)
     Route: 048
  9. LORATADINE [Suspect]
     Active Substance: LORATADINE
     Indication: Rash
     Dosage: 20 MG, QD (32ND DAY TO 39TH DAY)
     Route: 048
  10. LORATADINE [Suspect]
     Active Substance: LORATADINE
     Indication: Rash
  11. LORATADINE [Suspect]
     Active Substance: LORATADINE
     Indication: Dermatitis allergic
  12. CEFUROXIME [Suspect]
     Active Substance: CEFUROXIME
     Indication: Sinusitis
     Dosage: 4.5 MILLIGRAM, QD, 22ND DAY TO 39TH DAY
     Route: 042
  13. CEFUROXIME [Suspect]
     Active Substance: CEFUROXIME
     Indication: Sinusitis
  14. CEFUROXIME [Suspect]
     Active Substance: CEFUROXIME
     Indication: Inflammatory marker increased
  15. HALOPERIDOL [Suspect]
     Active Substance: HALOPERIDOL
     Indication: Psychomotor hyperactivity
     Dosage: UNK, QD (1ST TO 23TH DAY)
     Route: 065
  16. HALOPERIDOL [Suspect]
     Active Substance: HALOPERIDOL
     Indication: Persecutory delusion
     Dosage: 20 MG, QD (36TH TO 42ND DAY)
     Route: 065
  17. HALOPERIDOL [Suspect]
     Active Substance: HALOPERIDOL
     Indication: Aggression
  18. HALOPERIDOL [Suspect]
     Active Substance: HALOPERIDOL
     Indication: Psychotic symptom
  19. CIPROFLOXACIN [Suspect]
     Active Substance: CIPROFLOXACIN
     Indication: Inflammatory marker increased
     Dosage: 800 MG (35TH TO 39TH DAY)
     Route: 042
  20. CIPROFLOXACIN [Suspect]
     Active Substance: CIPROFLOXACIN
     Indication: Rash
     Dosage: 400 MG (31ST DAY)
     Route: 042
  21. DEXAMETHASONE [Suspect]
     Active Substance: DEXAMETHASONE
     Indication: Dermatitis allergic
     Dosage: 12 MG (32ND TO 39TH DAY)
     Route: 042
  22. DEXAMETHASONE [Suspect]
     Active Substance: DEXAMETHASONE
     Indication: Dermatitis allergic
  23. DEXAMETHASONE [Suspect]
     Active Substance: DEXAMETHASONE
     Indication: Rash
  24. TRIHEXYPHENIDYL [Suspect]
     Active Substance: TRIHEXYPHENIDYL
     Indication: Extrapyramidal disorder
     Dosage: 6 MG, QD
     Route: 048
  25. TRIHEXYPHENIDYL [Suspect]
     Active Substance: TRIHEXYPHENIDYL
     Indication: Aggression
     Dosage: 8 MG, QD
     Route: 048
  26. TRIHEXYPHENIDYL [Suspect]
     Active Substance: TRIHEXYPHENIDYL
     Indication: Persecutory delusion
     Dosage: 4 MG, QD
     Route: 048
  27. TRIHEXYPHENIDYL [Suspect]
     Active Substance: TRIHEXYPHENIDYL
     Indication: Psychomotor hyperactivity
     Dosage: 4 MG, QD
     Route: 048
  28. TRIHEXYPHENIDYL [Suspect]
     Active Substance: TRIHEXYPHENIDYL
     Indication: Psychotic symptom
  29. CARBAMAZEPINE [Suspect]
     Active Substance: CARBAMAZEPINE
     Indication: Psychotic symptom
     Dosage: 300 MG, QD
     Route: 048
  30. CARBAMAZEPINE [Suspect]
     Active Substance: CARBAMAZEPINE
     Indication: Persecutory delusion
     Dosage: 900 MG, QD
     Route: 048
  31. CARBAMAZEPINE [Suspect]
     Active Substance: CARBAMAZEPINE
     Indication: Abnormal behaviour
     Dosage: 600 MG, QD
     Route: 048
  32. AMOXICILLIN [Suspect]
     Active Substance: AMOXICILLIN
     Indication: Antibiotic therapy
     Dosage: 1500 MG, QD
     Route: 048
  33. AMOXICILLIN [Suspect]
     Active Substance: AMOXICILLIN
     Indication: Oral mucosal eruption
  34. AMOXICILLIN [Suspect]
     Active Substance: AMOXICILLIN
     Indication: Inflammatory marker increased
  35. AMOXICILLIN [Suspect]
     Active Substance: AMOXICILLIN
     Indication: Oropharyngeal pain
  36. CLEMASTINE [Suspect]
     Active Substance: CLEMASTINE
     Indication: Viral infection
     Dosage: 2 MG, QD (20TH TO 39TH DAY)
     Route: 048
  37. OLANZAPINE [Suspect]
     Active Substance: OLANZAPINE
     Indication: Psychotic symptom
     Dosage: 15 MG, QD
     Route: 048
  38. OLANZAPINE [Suspect]
     Active Substance: OLANZAPINE
     Indication: Persecutory delusion
     Dosage: 20 MG, QD
     Route: 048
  39. OLANZAPINE [Suspect]
     Active Substance: OLANZAPINE
     Indication: Abnormal behaviour

REACTIONS (7)
  - Extrapyramidal disorder [Unknown]
  - Drug reaction with eosinophilia and systemic symptoms [Recovered/Resolved]
  - Hepatic enzyme increased [Not Recovered/Not Resolved]
  - Acute hepatic failure [Unknown]
  - Pyrexia [Unknown]
  - Splenomegaly [Unknown]
  - Lymphadenopathy [Unknown]
